FAERS Safety Report 14456552 (Version 1)
Quarter: 2018Q1

REPORT INFORMATION
  Report Type: Spontaneous
  Country: ZA (occurrence: ZA)
  Receive Date: 20180130
  Receipt Date: 20180130
  Transmission Date: 20180509
  Serious: No
  Sender: FDA-Public Use
  Company Number: ZA-LUPIN PHARMACEUTICALS INC.-2017-01689

PATIENT
  Sex: Female

DRUGS (6)
  1. ADCO SIMVASTATIN [Suspect]
     Active Substance: SIMVASTATIN
     Indication: BLOOD CHOLESTEROL ABNORMAL
     Dosage: 10 MG, QD
     Dates: start: 20161003
  2. CARVEDILOL TABLETS 6.25 MG [Suspect]
     Active Substance: CARVEDILOL
     Indication: HYPERTENSION
     Dosage: 6.25 MG, QD
     Route: 048
     Dates: start: 20161003
  3. GULF AMLODIPINE [Suspect]
     Active Substance: AMLODIPINE BESYLATE
     Indication: HYPERTENSION
     Dosage: 10 MG, QD
     Route: 048
     Dates: start: 20161003
  4. NOXIDEM [Suspect]
     Active Substance: ZOLPIDEM TARTRATE
     Indication: INSOMNIA
     Dosage: 10 MG, QD, AT NIGHT
     Route: 048
     Dates: start: 20161105
  5. ALDACTONE [Suspect]
     Active Substance: SPIRONOLACTONE
     Indication: DIURETIC THERAPY
     Dosage: 25 MG, QD
     Dates: start: 20161003
  6. ECOTRIN [Suspect]
     Active Substance: ASPIRIN
     Indication: ANTICOAGULANT THERAPY
     Dosage: 81 MG, QD
     Route: 048
     Dates: start: 20161003

REACTIONS (6)
  - Arthralgia [None]
  - Insomnia [Unknown]
  - Musculoskeletal pain [Unknown]
  - Myalgia [Unknown]
  - Arthralgia [Unknown]
  - Pain in extremity [Unknown]
